FAERS Safety Report 22186039 (Version 2)
Quarter: 2024Q1

REPORT INFORMATION
  Report Type: Spontaneous
  Country: DE (occurrence: DE)
  Receive Date: 20230407
  Receipt Date: 20240306
  Transmission Date: 20240410
  Serious: Yes (Congenital Anomaly, Other)
  Sender: FDA-Public Use
  Company Number: None

PATIENT
  Age: 1 Day
  Sex: Female
  Weight: 3 kg

DRUGS (3)
  1. SERTRALINE [Suspect]
     Active Substance: SERTRALINE HYDROCHLORIDE
     Indication: Product used for unknown indication
     Dosage: MOTHER DOSE: 75 [MG/D] START DATE: 22-FEB-2022 TO 14-NOV-2022 FOR 265 DAYS.
     Route: 064
  2. METHYLPHENIDATE [Suspect]
     Active Substance: METHYLPHENIDATE
     Indication: Product used for unknown indication
     Dosage: MOTHER DOSE: 30 [MG/D] START DATE: 22-FEB-2022 TO 14-NOV-2022 FOR 265 DAYS.
     Route: 064
  3. INSULIN HUMAN [Concomitant]
     Active Substance: INSULIN HUMAN
     Indication: Product used for unknown indication
     Dosage: MOTHER DOSE: 22 (IU) PER DAY [IE/D]
     Route: 064

REACTIONS (4)
  - Atrial septal defect [Unknown]
  - Pulmonary valve stenosis [Unknown]
  - Pulmonary artery stenosis [Unknown]
  - Foetal exposure during pregnancy [Unknown]

NARRATIVE: CASE EVENT DATE: 20221101
